FAERS Safety Report 19504138 (Version 1)
Quarter: 2021Q3

REPORT INFORMATION
  Report Type: Spontaneous
  Country: US (occurrence: US)
  Receive Date: 20210708
  Receipt Date: 20210708
  Transmission Date: 20211014
  Serious: No
  Sender: FDA-Public Use
  Company Number: US-AJANTA PHARMA USA INC.-2113573

PATIENT
  Age: 72 Year
  Sex: Male
  Weight: 88.18 kg

DRUGS (3)
  1. VITAMIN B [Concomitant]
     Active Substance: VITAMIN B
  2. CHOLESTYRAMINE (ANDA 211119) [Suspect]
     Active Substance: CHOLESTYRAMINE
     Indication: DIARRHOEA
     Route: 048
     Dates: start: 20210413
  3. CALCIUM [Concomitant]
     Active Substance: CALCIUM

REACTIONS (4)
  - Cough [Recovered/Resolved]
  - Foreign body in throat [Not Recovered/Not Resolved]
  - Choking sensation [Recovered/Resolved]
  - Product solubility abnormal [Recovering/Resolving]

NARRATIVE: CASE EVENT DATE: 20210413
